FAERS Safety Report 4355880-5 (Version None)
Quarter: 2004Q2

REPORT INFORMATION
  Report Type: 
  Country: None (occurrence: None)
  Receive Date: 20040507
  Receipt Date: 20040507
  Transmission Date: 20050107
  Serious: Yes (Hospitalization)
  Sender: FDA-Public Use
  Company Number: None

PATIENT
  Age: 52 Year
  Sex: Male
  Weight: 86 kg

DRUGS (2)
  1. TAXOL [Suspect]
     Indication: BLADDER CANCER
     Dosage: 168 MG 60 MINUTES IV
     Route: 042
     Dates: start: 20040428, end: 20040428
  2. CISPLATIN [Suspect]
     Dosage: 147 60 MINUTES IV
     Route: 042
     Dates: start: 20040428, end: 20040428

REACTIONS (4)
  - DEHYDRATION [None]
  - NAUSEA [None]
  - VOMITING [None]
  - WEIGHT DECREASED [None]
